FAERS Safety Report 11713212 (Version 1)
Quarter: 2015Q4

REPORT INFORMATION
  Report Type: Spontaneous
  Country: US (occurrence: US)
  Receive Date: 20151109
  Receipt Date: 20151109
  Transmission Date: 20160304
  Serious: No
  Sender: FDA-Public Use
  Company Number: US-ASTRAZENECA-2015SF05310

PATIENT
  Sex: Male

DRUGS (8)
  1. ASPRIN [Concomitant]
     Active Substance: ASPIRIN
  2. OPIATE [Concomitant]
     Active Substance: UNSPECIFIED INGREDIENT
  3. NARCO [Concomitant]
     Dosage: 10/325MG A FEW TIMES A DAY AS NEEDED
  4. MOVANTIK [Suspect]
     Active Substance: NALOXEGOL OXALATE
     Indication: CONSTIPATION
     Route: 048
  5. LOSARTAN. [Concomitant]
     Active Substance: LOSARTAN
  6. MIRALAX [Concomitant]
     Active Substance: POLYETHYLENE GLYCOL 3350
     Dosage: DOUBLE DOSE TWICE DAILY
  7. COLACE [Concomitant]
     Active Substance: DOCUSATE SODIUM
  8. FLOMAX [Concomitant]
     Active Substance: TAMSULOSIN HYDROCHLORIDE

REACTIONS (3)
  - Diabetes mellitus [Unknown]
  - Abdominal distension [Unknown]
  - Constipation [Unknown]
